FAERS Safety Report 19035600 (Version 1)
Quarter: 2021Q1

REPORT INFORMATION
  Report Type: Spontaneous
  Country: SI (occurrence: SI)
  Receive Date: 20210320
  Receipt Date: 20210320
  Transmission Date: 20210420
  Serious: Yes (Hospitalization, Other)
  Sender: FDA-Public Use
  Company Number: SI-JNJFOC-20210336769

PATIENT
  Age: 77 Year
  Sex: Male

DRUGS (12)
  1. SPIRONOLACTONE. [Concomitant]
     Active Substance: SPIRONOLACTONE
     Dosage: 25 MG
  2. CARVEDILOL. [Concomitant]
     Active Substance: CARVEDILOL
     Dosage: 25 MG, BID
  3. XARELTO [Suspect]
     Active Substance: RIVAROXABAN
     Indication: ATRIAL FIBRILLATION
     Route: 048
  4. ALOPURINOL [Concomitant]
     Active Substance: ALLOPURINOL
     Dosage: 100 MG
  5. ROSUVASTATIN. [Concomitant]
     Active Substance: ROSUVASTATIN
     Dosage: 20 MG
  6. FUROSEMIDE. [Concomitant]
     Active Substance: FUROSEMIDE
     Dosage: 20 MG, TID
  7. DIGOXIN. [Concomitant]
     Active Substance: DIGOXIN
     Dosage: 0.1 MG, QOD
  8. PANTOPRAZOL [PANTOPRAZOLE] [Concomitant]
     Active Substance: PANTOPRAZOLE
     Dosage: 40 MG
  9. TAMSULOZIN [Concomitant]
     Dosage: 0.4 MG
  10. XARELTO [Suspect]
     Active Substance: RIVAROXABAN
     Indication: ANTICOAGULANT THERAPY
     Dosage: 15 MG
     Route: 048
     Dates: start: 2015
  11. TELMISARTAN. [Concomitant]
     Active Substance: TELMISARTAN
     Dosage: 40 MG, BID
  12. LACIDIPIN TEVA [Concomitant]
     Dosage: 4 MG, BID

REACTIONS (2)
  - Cardiac failure [Unknown]
  - Renal impairment [Unknown]

NARRATIVE: CASE EVENT DATE: 202009
